FAERS Safety Report 10086489 (Version 2)
Quarter: 2014Q2

REPORT INFORMATION
  Report Type: Spontaneous
  Country: US (occurrence: US)
  Receive Date: 20140418
  Receipt Date: 20140606
  Transmission Date: 20141212
  Serious: Yes (Other)
  Sender: FDA-Public Use
  Company Number: US-JNJFOC-20140409680

PATIENT
  Age: 72 Year
  Sex: Male
  Weight: 106.6 kg

DRUGS (31)
  1. XARELTO [Suspect]
     Indication: CEREBROVASCULAR ACCIDENT PROPHYLAXIS
     Route: 048
     Dates: start: 20140201
  2. XARELTO [Suspect]
     Indication: ATRIAL FIBRILLATION
     Route: 048
     Dates: start: 20140201
  3. DILTIAZEM [Concomitant]
     Indication: ATRIAL FIBRILLATION
     Route: 065
     Dates: start: 20140213
  4. OMEPRAZOLE [Concomitant]
     Indication: GASTROOESOPHAGEAL REFLUX DISEASE
     Route: 065
  5. LASIX [Concomitant]
     Route: 065
  6. ACCUPRIL [Concomitant]
     Indication: BLOOD PRESSURE ABNORMAL
     Route: 065
  7. LIPITOR [Concomitant]
     Indication: BLOOD TRIGLYCERIDES ABNORMAL
     Route: 065
  8. COREG [Concomitant]
     Indication: BLOOD PRESSURE ABNORMAL
     Route: 065
  9. OMEPRAZOLE [Concomitant]
     Indication: GASTROOESOPHAGEAL REFLUX DISEASE
     Route: 065
  10. ALLOPURINOL [Concomitant]
     Indication: GOUT
     Route: 065
  11. DIGOX [Concomitant]
     Indication: ARRHYTHMIA PROPHYLAXIS
     Dosage: AT NIGHT.
     Route: 065
  12. TRICOR [Concomitant]
     Indication: BLOOD TRIGLYCERIDES ABNORMAL
     Route: 065
  13. LASIX [Concomitant]
     Dosage: MORNING
     Route: 065
  14. ACCUPRIL [Concomitant]
     Indication: BLOOD PRESSURE ABNORMAL
     Route: 065
  15. OMEPRAZOLE [Concomitant]
     Indication: GASTROOESOPHAGEAL REFLUX DISEASE
     Dosage: MORNING
     Route: 065
  16. ALLOPURINOL [Concomitant]
     Indication: GOUT
     Dosage: MORNING
     Route: 065
  17. INDOCIN [Concomitant]
     Indication: GOUT
     Route: 065
  18. COREG [Concomitant]
     Indication: BLOOD PRESSURE ABNORMAL
     Route: 065
  19. SINGULAIR [Concomitant]
     Indication: SINUS OPERATION
     Route: 065
  20. FLUTICASONE PROPIONATE [Concomitant]
     Indication: SINUS OPERATION
     Route: 045
  21. ALBUTEROL [Concomitant]
     Indication: CHRONIC OBSTRUCTIVE PULMONARY DISEASE
     Dosage: AS NEEDED.
     Route: 065
  22. AMBIEN [Concomitant]
     Indication: SLEEP DISORDER THERAPY
     Dosage: BED TIME.
     Route: 065
  23. CARTIA XT [Concomitant]
     Dosage: MORNING.
     Route: 065
  24. GLUCOPHAGE [Concomitant]
     Indication: BLOOD PRESSURE ABNORMAL
     Dosage: WITH NIGHT TIME MEAL.
     Route: 065
  25. NIACIN [Concomitant]
     Indication: VITAMIN SUPPLEMENTATION
     Dosage: NIGHT.
     Route: 065
  26. VITAMIN D3 [Concomitant]
     Indication: VITAMIN SUPPLEMENTATION
     Dosage: NIGHT.
     Route: 065
  27. VITAMIN B12 [Concomitant]
     Indication: VITAMIN SUPPLEMENTATION
     Dosage: MORNING
     Route: 065
  28. VITAMIN C [Concomitant]
     Indication: VITAMIN SUPPLEMENTATION
     Dosage: IN THE MORNING.
     Route: 065
  29. VITAMINE  E [Concomitant]
     Indication: VITAMIN SUPPLEMENTATION
     Dosage: AT NIGHT TIME
     Route: 065
  30. VITAMIN B6 [Concomitant]
     Indication: VITAMIN SUPPLEMENTATION
     Dosage: NIGHT TIME.
     Route: 065
  31. GLUCOSAMINE CHONDROITIN MSM [Concomitant]
     Indication: VITAMIN SUPPLEMENTATION
     Dosage: 1 TABLET MORNING AND NIGHT
     Route: 065

REACTIONS (3)
  - Blood urine present [Recovered/Resolved]
  - Urinary tract infection bacterial [Recovered/Resolved]
  - Heart rate increased [Not Recovered/Not Resolved]
